FAERS Safety Report 9651792 (Version 1)
Quarter: 2013Q4

REPORT INFORMATION
  Report Type: Not Available
  Country: DE (occurrence: DE)
  Receive Date: 20131029
  Receipt Date: 20131029
  Transmission Date: 20140711
  Serious: Yes (Disabling, Congenital Anomaly)
  Sender: FDA-Public Use
  Company Number: DE-ASTELLAS-2013EU009130

PATIENT
  Age: 1 Day
  Sex: Female
  Weight: 1.95 kg

DRUGS (9)
  1. PROGRAF [Suspect]
     Indication: FOETAL EXPOSURE DURING PREGNANCY
     Dosage: 1 MG, BID
     Route: 064
  2. PREDNISOLIN [Suspect]
     Indication: FOETAL EXPOSURE DURING PREGNANCY
     Dosage: UNK
     Route: 064
  3. FUROSEMID /00032601/ [Suspect]
     Indication: FOETAL EXPOSURE DURING PREGNANCY
     Dosage: UNK MG/DAY, UNKNOWN/D
     Route: 064
  4. TORASEMID [Suspect]
     Indication: FOETAL EXPOSURE DURING PREGNANCY
     Dosage: 20 MG, BID
     Route: 064
  5. FLUVASTATIN [Suspect]
     Indication: FOETAL EXPOSURE DURING PREGNANCY
     Dosage: 20 MG, UNKNOWN/D
     Route: 064
  6. RAMIPRIL [Suspect]
     Indication: FOETAL EXPOSURE DURING PREGNANCY
     Dosage: 2.5 MG, UNKNOWN/D
     Route: 064
  7. OMEPRAZOL                          /00661201/ [Concomitant]
     Indication: FOETAL EXPOSURE DURING PREGNANCY
     Dosage: 40 MG, UNKNOWN/D
     Route: 064
  8. IDEOS [Concomitant]
     Indication: OSTEOPOROSIS PROPHYLAXIS
     Dosage: UNK
     Route: 064
  9. FOLSAEURE [Concomitant]
     Indication: PROPHYLAXIS OF NEURAL TUBE DEFECT
     Dosage: 5 MG, UNKNOWN/D
     Route: 064

REACTIONS (7)
  - Talipes [Unknown]
  - Cleft palate [Unknown]
  - Patent ductus arteriosus [Unknown]
  - Dysmorphism [Unknown]
  - Atrial septal defect [Unknown]
  - Premature baby [Recovering/Resolving]
  - Limb reduction defect [Not Recovered/Not Resolved]
